FAERS Safety Report 8744267 (Version 1)
Quarter: 2012Q4

REPORT INFORMATION
  Report Type: 
  Country: JP (occurrence: JP)
  Receive Date: 20120831
  Receipt Date: 20120831
  Transmission Date: 20130627
  Serious: Yes (Death, Life-Threatening, Hospitalization, Other)
  Sender: FDA-Public Use
  Company Number: JP-009507513-2007SP017145

PATIENT

DRUGS (40)
  1. TEMODAL [Suspect]
     Dosage: 75 mg/m2, QD
     Route: 048
     Dates: start: 20070306, end: 20070413
  2. TEMODAL [Suspect]
     Dosage: 150 mg/m2, QD
     Route: 048
     Dates: start: 20070514, end: 20070518
  3. TEMODAL [Suspect]
     Dosage: 150 mg/m2, QD
     Route: 048
     Dates: start: 20070619, end: 20070623
  4. TEMODAL [Suspect]
     Dosage: 150 mg/m2, QD
     Route: 048
     Dates: start: 20070716, end: 20070720
  5. TEMODAL [Suspect]
     Dosage: 150 mg/m2, QD
     Route: 048
     Dates: start: 20070813, end: 20070817
  6. TEMODAL [Suspect]
     Dosage: 150 mg/m2, QD
     Route: 048
     Dates: start: 20070910, end: 20070914
  7. TEMODAL [Suspect]
     Dosage: 150 mg/m2, QD
     Route: 048
     Dates: start: 20071010, end: 20071014
  8. TEMODAL [Suspect]
     Dosage: 150 mg/m2, QD
     Route: 048
     Dates: start: 20071117, end: 20071121
  9. TEMODAL [Suspect]
     Dosage: 150 mg/m2, QD
     Route: 048
     Dates: start: 20071215, end: 20071219
  10. TEMODAL [Suspect]
     Dosage: 150 mg/m2, QD
     Route: 048
     Dates: start: 20080119, end: 20080123
  11. BAKTAR [Concomitant]
     Indication: ANTIFUNGAL PROPHYLAXIS
     Route: 048
     Dates: start: 20060306, end: 20070425
  12. BAKTAR [Concomitant]
     Dosage: UNK
     Route: 048
     Dates: start: 20070502, end: 20080414
  13. PREDONINE [Concomitant]
     Route: 048
     Dates: start: 20070306, end: 20070405
  14. GASTER [Concomitant]
     Indication: PROPHYLAXIS
     Route: 048
     Dates: start: 20070306, end: 20070405
  15. NAUZELIN [Concomitant]
     Indication: PROPHYLAXIS
     Route: 048
     Dates: start: 20070306, end: 20070416
  16. MAGMITT [Concomitant]
     Indication: PROPHYLAXIS
     Dosage: UNK
     Route: 048
     Dates: start: 20070306, end: 20080414
  17. MINIPRESS [Concomitant]
     Route: 048
     Dates: end: 20070406
  18. CAPTORIL [Concomitant]
     Route: 048
     Dates: end: 20070406
  19. NORVASC [Concomitant]
     Route: 048
     Dates: end: 20070414
  20. DEPAKENE [Concomitant]
     Indication: PROPHYLAXIS
     Route: 048
     Dates: end: 20070419
  21. ZYLORIC [Concomitant]
     Route: 048
     Dates: end: 20070720
  22. METHOTREXATE [Concomitant]
     Route: 028
     Dates: start: 20070312, end: 20070331
  23. METHOTREXATE [Concomitant]
     Dosage: UNK
     Route: 028
     Dates: start: 20070926, end: 20071015
  24. PREDNISOLONE [Concomitant]
     Route: 028
     Dates: start: 20070312, end: 20070331
  25. PREDNISOLONE [Concomitant]
     Dosage: UNK
     Dates: start: 20070926, end: 20071103
  26. LEUCOVORIN [Concomitant]
     Indication: PROPHYLAXIS
     Route: 048
     Dates: start: 20070314, end: 20070401
  27. LEUCOVORIN [Concomitant]
     Dosage: UNK
     Route: 048
     Dates: start: 20070928, end: 20071016
  28. RINDERON [Concomitant]
     Indication: DERMATITIS
     Route: 061
     Dates: start: 20070414, end: 20070421
  29. SOFRA TULLE [Concomitant]
     Indication: DERMATITIS
     Route: 061
     Dates: start: 20070414, end: 20070421
  30. NASEA [Concomitant]
     Indication: PROPHYLAXIS
     Dosage: UNK
     Route: 048
     Dates: start: 20070514, end: 20070819
  31. NASEA [Concomitant]
     Route: 048
     Dates: start: 20070910, end: 20080123
  32. LOXOPROFEN [Concomitant]
     Route: 048
     Dates: start: 20071112, end: 20071211
  33. MUCOSTA [Concomitant]
     Indication: PROPHYLAXIS
     Route: 048
     Dates: start: 20071112, end: 20071211
  34. SENNOSIDES [Concomitant]
     Route: 048
     Dates: start: 20071113, end: 20071130
  35. FAMOSTAGINE [Concomitant]
     Indication: PROPHYLAXIS
     Route: 048
     Dates: start: 20080104, end: 20080414
  36. DECADRON (DEXAMETHASONE) [Concomitant]
     Route: 048
     Dates: start: 20080105, end: 20080414
  37. VALTREX [Concomitant]
     Route: 048
     Dates: start: 20080128, end: 20080414
  38. SELBEX [Suspect]
     Indication: PROPHYLAXIS
     Dosage: UNK
     Route: 048
     Dates: start: 20070503, end: 20070623
  39. CYLOCIDE [Concomitant]
     Dosage: UNK
     Route: 028
     Dates: start: 20071016, end: 20071103
  40. FAMOTIDINE [Concomitant]
     Indication: PROPHYLAXIS
     Dosage: UNK
     Route: 041
     Dates: start: 20080414, end: 20080424

REACTIONS (28)
  - Pneumocystis jiroveci pneumonia [Recovered/Resolved]
  - Brain oedema [Recovered/Resolved with Sequelae]
  - Convulsion [Fatal]
  - Pneumonia aspiration [Fatal]
  - Disease progression [Fatal]
  - Deep vein thrombosis [Recovering/Resolving]
  - White blood cell count decreased [Not Recovered/Not Resolved]
  - Neutrophil count decreased [Not Recovered/Not Resolved]
  - Lymphocyte count decreased [Not Recovered/Not Resolved]
  - Platelet count decreased [Recovered/Resolved]
  - White blood cell count decreased [Recovering/Resolving]
  - Neutrophil count decreased [Recovering/Resolving]
  - Lymphocyte count decreased [Recovering/Resolving]
  - Dermatitis [Recovered/Resolved]
  - Decreased appetite [Recovered/Resolved]
  - C-reactive protein increased [Recovered/Resolved]
  - Decreased appetite [Recovering/Resolving]
  - Otitis externa [Recovered/Resolved]
  - Compression fracture [Recovered/Resolved]
  - Anaemia [Recovering/Resolving]
  - Malaise [Recovering/Resolving]
  - Decreased appetite [Recovered/Resolved]
  - Headache [Recovering/Resolving]
  - Constipation [Recovering/Resolving]
  - Herpes simplex [Recovered/Resolved]
  - White blood cell count decreased [Recovered/Resolved]
  - Neutrophil count decreased [Recovered/Resolved]
  - Lymphocyte count decreased [Recovered/Resolved]
